FAERS Safety Report 19125167 (Version 1)
Quarter: 2021Q2

REPORT INFORMATION
  Report Type: Spontaneous
  Country: US (occurrence: US)
  Receive Date: 20210412
  Receipt Date: 20210412
  Transmission Date: 20210717
  Serious: Yes (Other)
  Sender: FDA-Public Use
  Company Number: US-SUNOVION-2021SUN001295

PATIENT
  Age: 65 Year
  Sex: Male

DRUGS (1)
  1. BROVANA [Suspect]
     Active Substance: ARFORMOTEROL TARTRATE
     Dosage: 15 ?G 2ML
     Route: 055

REACTIONS (3)
  - Tracheal disorder [Unknown]
  - Laryngeal disorder [Unknown]
  - Speech disorder [Unknown]
